FAERS Safety Report 9107689 (Version 1)
Quarter: 2013Q1

REPORT INFORMATION
  Report Type: Spontaneous
  Country: US (occurrence: US)
  Receive Date: 20130221
  Receipt Date: 20130221
  Transmission Date: 20140127
  Serious: No
  Sender: FDA-Public Use
  Company Number: US-009507513-1302USA007230

PATIENT
  Age: 69 Year
  Sex: Female

DRUGS (4)
  1. JANUMET [Suspect]
     Indication: DIABETES MELLITUS
     Dosage: 1 DF, BID
     Route: 048
     Dates: start: 201202, end: 20130211
  2. SIMVASTATIN [Concomitant]
     Dosage: UNK
  3. COREG [Concomitant]
     Dosage: UNK
  4. PEPCID [Concomitant]
     Dosage: UNK

REACTIONS (3)
  - Abdominal pain upper [Not Recovered/Not Resolved]
  - Diarrhoea [Not Recovered/Not Resolved]
  - Nausea [Not Recovered/Not Resolved]
